FAERS Safety Report 23104991 (Version 1)
Quarter: 2023Q4

REPORT INFORMATION
  Report Type: Report from Study
  Country: US (occurrence: US)
  Receive Date: 20231025
  Receipt Date: 20231025
  Transmission Date: 20240109
  Serious: Yes (Death, Hospitalization)
  Sender: FDA-Public Use
  Company Number: US-Eisai Medical Research-EC-2023-132575

PATIENT
  Age: 75 Year
  Sex: Male

DRUGS (4)
  1. LENVATINIB [Suspect]
     Active Substance: LENVATINIB
     Indication: Adenoid cystic carcinoma
     Route: 048
     Dates: start: 20221005, end: 20221024
  2. LENVATINIB [Suspect]
     Active Substance: LENVATINIB
     Indication: Salivary gland cancer
  3. PEMBROLIZUMAB [Suspect]
     Active Substance: PEMBROLIZUMAB
     Indication: Adenoid cystic carcinoma
     Route: 041
     Dates: start: 20221005, end: 20221005
  4. PEMBROLIZUMAB [Suspect]
     Active Substance: PEMBROLIZUMAB
     Indication: Salivary gland cancer

REACTIONS (3)
  - Cardiac arrest [Fatal]
  - Polymyositis [Recovered/Resolved]
  - Myocarditis [Recovered/Resolved]

NARRATIVE: CASE EVENT DATE: 20221024
